FAERS Safety Report 4498587-6 (Version None)
Quarter: 2004Q4

REPORT INFORMATION
  Report Type: 
  Country: None (occurrence: None)
  Receive Date: 20041108
  Receipt Date: 20041027
  Transmission Date: 20050328
  Serious: Yes (Other)
  Sender: FDA-Public Use
  Company Number: 2004233486US

PATIENT
  Age: 46 Year
  Sex: Female
  Weight: 83.9 kg

DRUGS (3)
  1. CELEBREX [Suspect]
     Indication: OSTEOARTHRITIS
     Dosage: SEE IMAGE
     Route: 048
     Dates: end: 20040801
  2. CELEBREX [Suspect]
     Indication: OSTEOARTHRITIS
     Dosage: SEE IMAGE
     Route: 048
     Dates: start: 20040801
  3. PHEN-FEN (FENFLURAMINE, PHENTERMINE) [Suspect]

REACTIONS (11)
  - BLOOD PRESSURE INCREASED [None]
  - BODY HEIGHT DECREASED [None]
  - CARDIOVASCULAR DISORDER [None]
  - DRUG INEFFECTIVE [None]
  - FIBROMYALGIA [None]
  - GENERALISED OEDEMA [None]
  - GOUT [None]
  - HEART VALVE INSUFFICIENCY [None]
  - INSOMNIA [None]
  - OSTEOPOROSIS [None]
  - PAIN [None]
